FAERS Safety Report 11462794 (Version 1)
Quarter: 2015Q3

REPORT INFORMATION
  Report Type: Spontaneous
  Country: US (occurrence: US)
  Receive Date: 20150831
  Receipt Date: 20150831
  Transmission Date: 20151125
  Serious: No
  Sender: FDA-Public Use
  Company Number: US-ELI_LILLY_AND_COMPANY-US201101005959

PATIENT
  Sex: Male

DRUGS (2)
  1. NEURONTIN [Interacting]
     Active Substance: GABAPENTIN
  2. CYMBALTA [Suspect]
     Active Substance: DULOXETINE HYDROCHLORIDE
     Indication: DIABETIC NEUROPATHY
     Dosage: 60 MG, UNK

REACTIONS (4)
  - Fall [Recovered/Resolved]
  - Balance disorder [Unknown]
  - Drug interaction [Recovered/Resolved]
  - Dizziness [Unknown]
